FAERS Safety Report 15987103 (Version 3)
Quarter: 2019Q2

REPORT INFORMATION
  Report Type: Spontaneous
  Country: JP (occurrence: JP)
  Receive Date: 20190220
  Receipt Date: 20190626
  Transmission Date: 20190711
  Serious: Yes (Hospitalization)
  Sender: FDA-Public Use
  Company Number: JP-PFIZER INC-2019067389

PATIENT
  Age: 77 Year
  Sex: Male
  Weight: 38 kg

DRUGS (4)
  1. NICOTINELL [Suspect]
     Active Substance: NICOTINE
     Indication: SMOKING CESSATION THERAPY
     Dosage: 1 DF, 1X/DAY
     Route: 062
     Dates: start: 20180228, end: 20180327
  2. CHAMPIX 1MG [Suspect]
     Active Substance: VARENICLINE TARTRATE
     Indication: SMOKING CESSATION THERAPY
     Dosage: 1 MG, 2X/DAY
     Route: 048
     Dates: start: 20180207, end: 20180220
  3. CHAMPIX 0.5MG [Suspect]
     Active Substance: VARENICLINE TARTRATE
     Indication: SMOKING CESSATION THERAPY
     Dosage: 0.5 MG, 1X/DAY
     Route: 048
     Dates: start: 20180131, end: 20180202
  4. CHAMPIX 0.5MG [Suspect]
     Active Substance: VARENICLINE TARTRATE
     Dosage: 0.5 MG, 2X/DAY
     Route: 048
     Dates: start: 20180203, end: 20180206

REACTIONS (6)
  - Decreased appetite [Recovered/Resolved]
  - Eating disorder [Recovered/Resolved]
  - Pneumonia [Recovered/Resolved]
  - Insomnia [Recovered/Resolved]
  - Cholestasis [Recovered/Resolved]
  - Malaise [Recovered/Resolved]

NARRATIVE: CASE EVENT DATE: 20180214
